FAERS Safety Report 6212070-9 (Version None)
Quarter: 2009Q2

REPORT INFORMATION
  Report Type: 
  Country: None (occurrence: None)
  Receive Date: 20090602
  Receipt Date: 20090525
  Transmission Date: 20091009
  Serious: Yes (Hospitalization, Other)
  Sender: FDA-Public Use
  Company Number: ES-AVENTIS-200912831EU

PATIENT
  Sex: Male

DRUGS (6)
  1. SEGURIL                            /00032601/ [Suspect]
     Route: 048
     Dates: start: 20080714
  2. ALDACTONE [Suspect]
     Route: 048
  3. INACID                             /00003801/ [Suspect]
     Indication: BONE PAIN
     Dosage: DOSE: UNK
     Route: 048
     Dates: start: 20080717, end: 20080721
  4. ADIRO [Concomitant]
     Route: 048
  5. HYDRAPRES [Concomitant]
     Route: 048
  6. ZYLORIC [Concomitant]
     Route: 048

REACTIONS (4)
  - CARDIAC FAILURE [None]
  - DRUG INEFFECTIVE [None]
  - DRUG INTERACTION [None]
  - RENAL FAILURE ACUTE [None]
